FAERS Safety Report 8046399-9 (Version None)
Quarter: 2012Q1

REPORT INFORMATION
  Report Type: 
  Country: None (occurrence: None)
  Receive Date: 20120113
  Receipt Date: 20120109
  Transmission Date: 20120608
  Serious: Yes (Life-Threatening)
  Sender: FDA-Public Use
  Company Number: FR-ASTRAZENECA-2012SE01676

PATIENT
  Age: 15200 Day
  Sex: Male

DRUGS (4)
  1. ESCITALOPRAM OXALATE [Concomitant]
     Route: 048
     Dates: start: 20110101, end: 20111204
  2. QUETIAPINE FUMARATE [Suspect]
     Route: 048
     Dates: start: 20111125, end: 20111204
  3. LITHIUM CARBONATE [Concomitant]
     Route: 048
     Dates: start: 20110101, end: 20111204
  4. OXAZEPAM [Suspect]
     Route: 048
     Dates: start: 20111202, end: 20111204

REACTIONS (2)
  - PNEUMONIA ASPIRATION [None]
  - SEDATION [None]
